FAERS Safety Report 18054804 (Version 2)
Quarter: 2020Q3

REPORT INFORMATION
  Report Type: Spontaneous
  Country: US (occurrence: US)
  Receive Date: 20200722
  Receipt Date: 20200727
  Transmission Date: 20201103
  Serious: Yes (Life-Threatening, Hospitalization, Other)
  Sender: FDA-Public Use
  Company Number: US-PFIZER INC-2020278475

PATIENT
  Age: 47 Year
  Sex: Male

DRUGS (7)
  1. HEPARIN SODIUM. [Suspect]
     Active Substance: HEPARIN SODIUM
     Indication: ANTICOAGULANT THERAPY
     Dosage: HEPARIN (U/KG/H): 12?15
  2. TICAGRELOR. [Concomitant]
     Active Substance: TICAGRELOR
     Dosage: UNK
  3. EPTIFIBATIDE. [Concomitant]
     Active Substance: EPTIFIBATIDE
     Dosage: UNK
  4. HEPARIN SODIUM. [Suspect]
     Active Substance: HEPARIN SODIUM
     Dosage: HEPARIN (U/KG/H): 12?15
  5. HEPARIN SODIUM. [Suspect]
     Active Substance: HEPARIN SODIUM
     Dosage: HEPARIN BASED PURGE SOLUTION IN A 10% DEXTROSE SOLUTION
  6. HEPARIN SODIUM. [Suspect]
     Active Substance: HEPARIN SODIUM
     Dosage: 13 IU/KG
  7. DEXTROSE 10% [Concomitant]
     Active Substance: DEXTROSE
     Dosage: HEPARIN BASED PURGE SOLUTION IN A 10% DEXTROSE SOLUTION, IMPELLA DAY 1

REACTIONS (3)
  - Haemorrhage [Recovering/Resolving]
  - Haemoglobin decreased [Recovering/Resolving]
  - Heparin-induced thrombocytopenia [Recovering/Resolving]
